FAERS Safety Report 10167691 (Version 1)
Quarter: 2014Q2

REPORT INFORMATION
  Report Type: Spontaneous
  Country: US (occurrence: None)
  Receive Date: 20140508
  Receipt Date: 20140508
  Transmission Date: 20141212
  Serious: Yes (Hospitalization)
  Sender: FDA-Public Use
  Company Number: UTC-048028

PATIENT
  Age: 73 Year
  Sex: Male
  Weight: 90.72 kg

DRUGS (2)
  1. TYVASO [Suspect]
     Indication: PULMONARY ARTERIAL HYPERTENSION
     Route: 055
     Dates: start: 20140317
  2. WARFARIN [Concomitant]

REACTIONS (1)
  - Gastrointestinal haemorrhage [None]
